FAERS Safety Report 7229078-7 (Version None)
Quarter: 2011Q1

REPORT INFORMATION
  Report Type: 
  Country: None (occurrence: None)
  Receive Date: 20110117
  Receipt Date: 20110107
  Transmission Date: 20110831
  Serious: Yes (Other)
  Sender: FDA-Public Use
  Company Number: US-JNJFOC-20100202065

PATIENT
  Sex: Female
  Weight: 110 kg

DRUGS (6)
  1. TRINESSA [Suspect]
     Indication: CONTRACEPTION
     Route: 048
  2. IRON [Concomitant]
     Route: 065
  3. XYZAL [Concomitant]
     Route: 065
  4. TOPAMAX [Concomitant]
     Route: 065
  5. TANEZUMAB [Suspect]
     Indication: OSTEOARTHRITIS
     Route: 042
  6. MULTI-VITAMINS [Concomitant]
     Route: 065

REACTIONS (3)
  - PREGNANCY ON ORAL CONTRACEPTIVE [None]
  - ABORTION SPONTANEOUS [None]
  - DRUG EXPOSURE DURING PREGNANCY [None]
